FAERS Safety Report 7527354-1 (Version None)
Quarter: 2011Q2

REPORT INFORMATION
  Report Type: 
  Country: None (occurrence: None)
  Receive Date: 20110607
  Receipt Date: 20090106
  Transmission Date: 20111010
  Serious: Yes (Death, Other)
  Sender: FDA-Public Use
  Company Number: US-BAYER-200917864NA

PATIENT
  Age: 54 Year
  Sex: Male
  Weight: 91 kg

DRUGS (32)
  1. TRASYLOL [Suspect]
     Dosage: 200 ML LOADING DOSE
     Dates: start: 20061230, end: 20061231
  2. LASIX [Concomitant]
     Dosage: 40 MG, TID
     Route: 048
     Dates: start: 20061201, end: 20070108
  3. ALLOPURINOL [Concomitant]
     Dosage: 100 MG, QD
     Route: 048
     Dates: end: 20061231
  4. DIOVAN [Concomitant]
     Dosage: 80 MG, QD
     Route: 048
  5. LANTUS [Concomitant]
     Dosage: 26 U, HS
     Route: 058
  6. PROTAMINE SULFATE [Concomitant]
     Dosage: 350 MG
     Route: 042
     Dates: start: 20061230
  7. TRASYLOL [Suspect]
     Indication: HEART TRANSPLANT
     Dosage: 1 ML, ONCE, INITIAL TEST DOSE
     Route: 042
     Dates: start: 20061230, end: 20061231
  8. LASIX [Concomitant]
     Dosage: 20 MG
     Route: 042
     Dates: start: 20061230
  9. COUMADIN [Concomitant]
     Dosage: VARIED
     Route: 048
     Dates: start: 19880101, end: 20060101
  10. TRICOR [Concomitant]
     Dosage: 145 MG, QD
     Dates: start: 20020101, end: 20060101
  11. HUMALOG [Concomitant]
     Dosage: SLIDING SCALE
     Route: 058
  12. REMERON [Concomitant]
     Dosage: 15 MG, HS
     Route: 048
  13. GENTAMYCIN SULFATE [Concomitant]
     Dosage: UNK
     Route: 042
     Dates: start: 20061230
  14. AMIODARONE HCL [Concomitant]
     Dosage: UNK
     Route: 042
     Dates: start: 20061230
  15. VYTORIN [Concomitant]
     Dosage: 10-20 MG DAILY
     Route: 048
  16. KLONOPIN [Concomitant]
     Dosage: 0.5 MG/TWICE DAILY
     Route: 048
  17. ZAROXOLYN [Concomitant]
     Dosage: 2.5 MG WEEKLY
     Route: 048
     Dates: start: 20060101, end: 20061015
  18. METHYLPREDNISOLONE ACETATE [Concomitant]
     Dosage: UNK
     Route: 042
     Dates: start: 20061230
  19. CEFAZOLIN [Concomitant]
     Dosage: UNK
     Route: 042
     Dates: start: 20061230
  20. ALDACTONE [Concomitant]
     Dosage: UNK
     Dates: start: 20060101, end: 20070108
  21. VANCOMYCIN [Concomitant]
     Dosage: 150 MG
     Dates: start: 20061230
  22. PLASMA [Concomitant]
     Dosage: 270 ML
     Route: 042
     Dates: start: 20061230
  23. AMIODARONE HCL [Concomitant]
     Dosage: 400 MG, QD
     Route: 048
     Dates: start: 20050101, end: 20060101
  24. COREG [Concomitant]
     Dosage: 12.5 MG, TID
     Route: 048
     Dates: start: 20020101, end: 20060101
  25. PROTONIX [Concomitant]
     Dosage: 40 MG, QD
     Route: 048
     Dates: start: 20050101, end: 20060101
  26. LEXAPRO [Concomitant]
     Dosage: 10 MG DAILY
     Route: 048
  27. DOPAMINE HCL [Concomitant]
     Dosage: UNK
     Route: 042
     Dates: start: 20061230
  28. PLATELETS [Concomitant]
     Dosage: 6 UNITS
     Route: 042
     Dates: start: 20061230
  29. TRASYLOL [Suspect]
     Dosage: 50 ML/HOUR
     Route: 042
     Dates: start: 20061230, end: 20061231
  30. KLONOPIN [Concomitant]
     Dosage: 1 MG AT BEDTIME
     Route: 048
  31. DOBUTAMINE HYDROCHLORIDE [Concomitant]
     Dosage: UNK
     Route: 042
     Dates: start: 20061230
  32. HEPARIN [Concomitant]
     Dosage: 41,000 UNITS
     Route: 042
     Dates: start: 20061230

REACTIONS (14)
  - RENAL IMPAIRMENT [None]
  - MULTI-ORGAN FAILURE [None]
  - EMOTIONAL DISTRESS [None]
  - ANXIETY [None]
  - DEATH [None]
  - RENAL INJURY [None]
  - FEAR [None]
  - RENAL FAILURE [None]
  - MYOCARDIAL INFARCTION [None]
  - STRESS [None]
  - INJURY [None]
  - UNEVALUABLE EVENT [None]
  - PAIN [None]
  - ANHEDONIA [None]
